FAERS Safety Report 9265539 (Version 1)
Quarter: 2013Q2

REPORT INFORMATION
  Report Type: Spontaneous
  Country: US (occurrence: US)
  Receive Date: 20130501
  Receipt Date: 20130501
  Transmission Date: 20140414
  Serious: No
  Sender: FDA-Public Use
  Company Number: US-BAYER-2013-054292

PATIENT
  Age: 83 Year
  Sex: Female
  Weight: 56.69 kg

DRUGS (6)
  1. ALEVE CAPLET [Suspect]
     Indication: ARTHRITIS
     Dosage: 2 DF, PRN
     Route: 048
     Dates: start: 20130421, end: 20130422
  2. METOPROLOL TARTRATE [Concomitant]
  3. FUROSEMIDE [Concomitant]
  4. KLOR-CON [Concomitant]
  5. CENTRUM SILVER [Concomitant]
  6. IRON SUPPLEMENT [Concomitant]

REACTIONS (1)
  - Erythema [Not Recovered/Not Resolved]
